FAERS Safety Report 4838889-4 (Version None)
Quarter: 2005Q4

REPORT INFORMATION
  Report Type: 
  Country: None (occurrence: None)
  Receive Date: 20051129
  Receipt Date: 20050916
  Transmission Date: 20060501
  Serious: No
  Sender: FDA-Public Use
  Company Number: US-GLAXOSMITHKLINE-A0574548A

PATIENT
  Age: 56 Year
  Sex: Female

DRUGS (4)
  1. LOTRONEX [Suspect]
     Indication: IRRITABLE BOWEL SYNDROME
     Dosage: 1MG TWICE PER DAY
     Route: 048
     Dates: start: 20050501
  2. PREDNISOLONE [Concomitant]
  3. DEPAKOTE [Concomitant]
  4. ELIDEL [Concomitant]

REACTIONS (1)
  - DIARRHOEA [None]
